FAERS Safety Report 14068235 (Version 1)
Quarter: 2017Q4

REPORT INFORMATION
  Report Type: Spontaneous
  Country: US (occurrence: US)
  Receive Date: 20171009
  Receipt Date: 20171009
  Transmission Date: 20180321
  Serious: Yes (Life-Threatening, Hospitalization, Disabling)
  Sender: FDA-Public Use
  Company Number: None

PATIENT
  Age: 35 Year
  Sex: Female
  Weight: 128.25 kg

DRUGS (3)
  1. TRANEXAMIC ACID 650MG TABLETS WATSON LABORATORIES, INC [Suspect]
     Active Substance: TRANEXAMIC ACID
     Indication: MENORRHAGIA
     Dosage: ?          QUANTITY:2 TABLET(S);?
     Route: 048
  2. WARFARIN [Concomitant]
     Active Substance: WARFARIN
  3. ONE A DAY WOMEN^S MULTIVITAMIN [Concomitant]

REACTIONS (4)
  - Deep vein thrombosis [None]
  - Drug ineffective [None]
  - Pulmonary embolism [None]
  - Quality of life decreased [None]

NARRATIVE: CASE EVENT DATE: 20170717
